FAERS Safety Report 20770963 (Version 1)
Quarter: 2022Q2

REPORT INFORMATION
  Report Type: Spontaneous
  Country: GR (occurrence: GR)
  Receive Date: 20220429
  Receipt Date: 20220429
  Transmission Date: 20220720
  Serious: Yes (Other)
  Sender: FDA-Public Use
  Company Number: GR-NOVARTISPH-NVSC2022GR096977

PATIENT
  Age: 57 Year
  Sex: Female

DRUGS (1)
  1. PAZOPANIB [Suspect]
     Active Substance: PAZOPANIB
     Indication: Angiosarcoma
     Dosage: 800 MG, QD
     Route: 048

REACTIONS (4)
  - Hepatotoxicity [Unknown]
  - Angiosarcoma [Unknown]
  - Malignant neoplasm progression [Unknown]
  - Fatigue [Unknown]
